FAERS Safety Report 4819588-1 (Version None)
Quarter: 2005Q4

REPORT INFORMATION
  Report Type: 
  Country: None (occurrence: None)
  Receive Date: 20051102
  Receipt Date: 20051102
  Transmission Date: 20060501
  Serious: No
  Sender: FDA-Public Use
  Company Number: None

PATIENT
  Sex: Male

DRUGS (1)
  1. TRAMADOL HCL [Suspect]

REACTIONS (3)
  - GRAND MAL CONVULSION [None]
  - PARTIAL SEIZURES WITH SECONDARY GENERALISATION [None]
  - TREATMENT NONCOMPLIANCE [None]
